FAERS Safety Report 6599350-2 (Version None)
Quarter: 2010Q1

REPORT INFORMATION
  Report Type: 
  Country: None (occurrence: None)
  Receive Date: 20100224
  Receipt Date: 20100212
  Transmission Date: 20100710
  Serious: Yes (Death, Hospitalization)
  Sender: FDA-Public Use
  Company Number: FR-PFIZER INC-2010019483

PATIENT
  Age: 34 Year
  Sex: Female
  Weight: 43 kg

DRUGS (1)
  1. SUNITINIB MALATE [Suspect]
     Indication: THYROID CANCER
     Dosage: 50 MG, 1X/DAY
     Dates: start: 20090504

REACTIONS (1)
  - MALNUTRITION [None]
